FAERS Safety Report 22186596 (Version 1)
Quarter: 2023Q2

REPORT INFORMATION
  Report Type: Spontaneous
  Country: GB (occurrence: GB)
  Receive Date: 20230407
  Receipt Date: 20230407
  Transmission Date: 20230721
  Serious: Yes (Other)
  Sender: FDA-Public Use
  Company Number: GB-TEVA-2023-GB-2873894

PATIENT

DRUGS (1)
  1. DEXTROAMPHETAMINE [Suspect]
     Active Substance: DEXTROAMPHETAMINE
     Indication: Product used for unknown indication
     Route: 048

REACTIONS (2)
  - Anaphylactic reaction [Unknown]
  - Product after taste [Unknown]
